FAERS Safety Report 5678816-3 (Version None)
Quarter: 2008Q1

REPORT INFORMATION
  Report Type: 
  Country: None (occurrence: None)
  Receive Date: 20080321
  Receipt Date: 20080313
  Transmission Date: 20080703
  Serious: Yes (Other)
  Sender: FDA-Public Use
  Company Number: 2008AP000292

PATIENT
  Age: 67 Year
  Sex: Female

DRUGS (6)
  1. LORATADINE [Suspect]
     Indication: NASOPHARYNGITIS
     Dosage: 10 MG;QD;PO
     Route: 048
     Dates: start: 20071212, end: 20071213
  2. LORATADINE [Suspect]
     Indication: SEASONAL ALLERGY
     Dosage: 10 MG;QD;PO
     Route: 048
     Dates: start: 20071212, end: 20071213
  3. ATENOLOL [Concomitant]
  4. CLOPIDOGREL BISULFATE [Concomitant]
  5. CLONIDINE HCL [Concomitant]
  6. LORATADINE [Concomitant]

REACTIONS (3)
  - BLOOD PRESSURE INCREASED [None]
  - HEADACHE [None]
  - PAIN IN EXTREMITY [None]
